FAERS Safety Report 5633652-9 (Version None)
Quarter: 2008Q1

REPORT INFORMATION
  Report Type: 
  Country: None (occurrence: None)
  Receive Date: 20080221
  Receipt Date: 20080211
  Transmission Date: 20080703
  Serious: Yes (Other)
  Sender: FDA-Public Use
  Company Number: US-PFIZER INC-2008014687

PATIENT
  Sex: Female
  Weight: 81.6 kg

DRUGS (18)
  1. LYRICA [Suspect]
     Indication: FIBROMYALGIA
     Route: 048
     Dates: start: 20070101, end: 20080211
  2. LIPITOR [Suspect]
     Indication: BLOOD CHOLESTEROL INCREASED
  3. TRIOBE [Suspect]
     Indication: HYPOAESTHESIA
     Route: 048
     Dates: start: 20071101, end: 20080101
  4. PREVACID [Concomitant]
  5. PLAVIX [Concomitant]
  6. TOPROL-XL [Concomitant]
  7. RANEXA [Concomitant]
  8. CELEBREX [Concomitant]
  9. METFORMIN HCL [Concomitant]
  10. NORVASC [Concomitant]
  11. NIASPAN [Concomitant]
  12. VYTORIN [Concomitant]
  13. MIRAPEX [Concomitant]
  14. ZETIA [Concomitant]
  15. CALCIUM [Concomitant]
  16. VITAMIN E [Concomitant]
  17. ASCORBIC ACID [Concomitant]
  18. MAGNESIUM [Concomitant]

REACTIONS (6)
  - ECCHYMOSIS [None]
  - HYPOAESTHESIA [None]
  - NERVOUS SYSTEM DISORDER [None]
  - PAIN [None]
  - PRURITUS [None]
  - RASH VESICULAR [None]
